FAERS Safety Report 5355708-0 (Version None)
Quarter: 2007Q2

REPORT INFORMATION
  Report Type: 
  Country: None (occurrence: None)
  Receive Date: 20070613
  Receipt Date: 20070606
  Transmission Date: 20071010
  Serious: Yes (Other)
  Sender: FDA-Public Use
  Company Number: JP-ASTRAZENECA-2007AP03414

PATIENT
  Age: 75 Year
  Sex: Male

DRUGS (2)
  1. DIPRIVAN [Suspect]
     Indication: GENERAL ANAESTHESIA
     Route: 042
  2. DIPRIVAN [Suspect]
     Indication: EPIDURAL ANAESTHESIA
     Route: 042

REACTIONS (1)
  - DELAYED RECOVERY FROM ANAESTHESIA [None]
